FAERS Safety Report 23874354 (Version 2)
Quarter: 2024Q2

REPORT INFORMATION
  Report Type: Spontaneous
  Country: JP (occurrence: JP)
  Receive Date: 20240520
  Receipt Date: 20240603
  Transmission Date: 20240716
  Serious: Yes (Other)
  Sender: FDA-Public Use
  Company Number: JP-WT-2024-JPN-058580

PATIENT
  Age: 83 Year
  Sex: Male
  Weight: 58.3 kg

DRUGS (6)
  1. DUTASTERIDE [Suspect]
     Active Substance: DUTASTERIDE
     Indication: Benign prostatic hyperplasia
     Dosage: 0.5 MG, 1D
     Route: 048
     Dates: start: 20231222, end: 20240213
  2. NAFTOPIDIL [Suspect]
     Active Substance: NAFTOPIDIL
     Indication: Benign prostatic hyperplasia
     Dosage: 75 MG, 1D
     Route: 048
     Dates: start: 20231222, end: 20240213
  3. AMLODIPINE [Concomitant]
     Active Substance: AMLODIPINE BESYLATE
     Route: 048
  4. Posterisan forte [Concomitant]
     Route: 065
  5. SENNOSIDES [Concomitant]
     Active Substance: SENNOSIDES
     Route: 065
  6. RINDERON VG [Concomitant]
     Active Substance: BETAMETHASONE VALERATE\GENTAMICIN SULFATE
     Route: 061

REACTIONS (2)
  - Drug-induced liver injury [Recovered/Resolved]
  - Hepatic function abnormal [Recovered/Resolved]

NARRATIVE: CASE EVENT DATE: 20240126
